FAERS Safety Report 4959260-0 (Version None)
Quarter: 2006Q1

REPORT INFORMATION
  Report Type: 
  Country: None (occurrence: None)
  Receive Date: 20060331
  Receipt Date: 20060330
  Transmission Date: 20060701
  Serious: Yes (Life-Threatening)
  Sender: FDA-Public Use
  Company Number: JP-SANOFI-SYNTHELABO-F01200600912

PATIENT
  Sex: Male
  Weight: 60 kg

DRUGS (3)
  1. OXALIPLATIN [Suspect]
     Indication: COLON CANCER
     Dosage: 60 MG/BODY=38 MG/M2
     Route: 042
     Dates: start: 20050914, end: 20050914
  2. FLUOROURACIL [Suspect]
     Dosage: 250 MG/BODY=158.2 MG/M2 IN BOLUS THEN 500 MG/BODY=316.5 MG/M2 AS INFUSION
     Route: 042
     Dates: start: 20050914, end: 20050915
  3. CALCIUM LEVOFOLINATE [Suspect]
     Dosage: 100 MG/BODY=63.3 MG/M2
     Route: 042
     Dates: start: 20050914, end: 20050915

REACTIONS (2)
  - ERYTHEMA [None]
  - GENERALISED OEDEMA [None]
